FAERS Safety Report 4358330-8 (Version None)
Quarter: 2004Q2

REPORT INFORMATION
  Report Type: 
  Country: None (occurrence: None)
  Receive Date: 20040510
  Receipt Date: 20040427
  Transmission Date: 20050107
  Serious: Yes (Life-Threatening, Other)
  Sender: FDA-Public Use
  Company Number: 2004-BP-02981NB

PATIENT
  Age: 49 Year
  Sex: Female

DRUGS (2)
  1. MICARDIS [Suspect]
     Indication: HYPERTENSION
     Dosage: 80 MG
     Route: 048
     Dates: start: 20040331, end: 20040405
  2. CALBLOCK (AZELNIDIPINE) (TA) [Suspect]
     Indication: HYPERTENSION
     Dosage: 16 MG
     Route: 048
     Dates: start: 20040331, end: 20040405

REACTIONS (3)
  - BILIARY TRACT DISORDER [None]
  - HEPATITIS ACUTE [None]
  - JAUNDICE [None]
